FAERS Safety Report 5209863-3 (Version None)
Quarter: 2006Q4

REPORT INFORMATION
  Report Type: 
  Country: None (occurrence: None)
  Receive Date: 20061128
  Receipt Date: 20061025
  Transmission Date: 20070319
  Serious: No
  Sender: FDA-Public Use
  Company Number: S06-USA-04485-01

PATIENT
  Age: 40 Year
  Sex: Male

DRUGS (2)
  1. CAMPRAL (ASAMPROSATE CALCIUM) [Suspect]
     Indication: ALCOHOLISM
     Dosage: 666 MG ONCE PO
     Route: 048
     Dates: start: 20061025, end: 20061025
  2. LEXAPRO [Concomitant]

REACTIONS (3)
  - CHEST DISCOMFORT [None]
  - DIARRHOEA [None]
  - NAUSEA [None]
